FAERS Safety Report 23435816 (Version 1)
Quarter: 2024Q1

REPORT INFORMATION
  Report Type: Spontaneous
  Country: US (occurrence: US)
  Receive Date: 20240124
  Receipt Date: 20240124
  Transmission Date: 20240409
  Serious: No
  Sender: FDA-Public Use
  Company Number: US-AMGEN-USASP2024013894

PATIENT
  Sex: Female
  Weight: 74.1 kg

DRUGS (2)
  1. MVASI [Suspect]
     Active Substance: BEVACIZUMAB-AWWB
     Indication: Endometrial neoplasm
     Dosage: (400 MG X 2 VIALS), (100 MG X 3 VIALS)
     Route: 065
  2. MVASI [Suspect]
     Active Substance: BEVACIZUMAB-AWWB
     Dosage: (400 MG X 2 VIALS), (100 MG X 3 VIALS)
     Route: 065

REACTIONS (2)
  - Cough [Unknown]
  - Rhinorrhoea [Unknown]
